FAERS Safety Report 9005189 (Version 1)
Quarter: 2013Q1

REPORT INFORMATION
  Report Type: Spontaneous
  Country: US (occurrence: None)
  Receive Date: 20130107
  Receipt Date: 20130107
  Transmission Date: 20140127
  Serious: Yes (Other)
  Sender: FDA-Public Use
  Company Number: None

PATIENT
  Age: 36 Year
  Sex: Female
  Weight: 70.31 kg

DRUGS (1)
  1. MONTELUKAST [Suspect]
     Indication: ASTHMA
     Dosage: 1 TABLET EVERY DAY ORAL
     Route: 048
     Dates: start: 20121224, end: 20121226

REACTIONS (3)
  - Product substitution issue [None]
  - Dizziness [None]
  - Vertigo [None]
